FAERS Safety Report 10825835 (Version 1)
Quarter: 2015Q1

REPORT INFORMATION
  Report Type: Spontaneous
  Country: BR (occurrence: BR)
  Receive Date: 20150219
  Receipt Date: 20150219
  Transmission Date: 20150721
  Serious: Yes (Other)
  Sender: FDA-Public Use
  Company Number: BR-AUROBINDO-AUR-APL-2015-01326

PATIENT
  Age: 61 Year
  Sex: Female
  Weight: 58 kg

DRUGS (12)
  1. BISACODILO [Concomitant]
     Indication: PRODUCT USED FOR UNKNOWN INDICATION
     Dosage: 5 MG/ DIA
     Route: 065
  2. OXACILLIN [Suspect]
     Active Substance: OXACILLIN SODIUM
     Indication: INFLAMMATION
  3. TRAMADOL [Concomitant]
     Active Substance: TRAMADOL
     Indication: PRODUCT USED FOR UNKNOWN INDICATION
     Dosage: 100 MG, 8/8HS
     Route: 065
  4. ONDASETRON                         /00955301/ [Concomitant]
     Indication: PRODUCT USED FOR UNKNOWN INDICATION
     Dosage: 8 MG, UNK
  5. PREDNISONA [Concomitant]
     Active Substance: PREDNISONE
     Indication: PRODUCT USED FOR UNKNOWN INDICATION
     Dosage: 5 MG/ DIA
     Route: 065
  6. PANTOPRAZOLE [Concomitant]
     Active Substance: PANTOPRAZOLE SODIUM
     Indication: PRODUCT USED FOR UNKNOWN INDICATION
     Dosage: 40 MG, 4/4HS
     Route: 065
  7. GABAPENTINA [Concomitant]
     Active Substance: GABAPENTIN
     Indication: PRODUCT USED FOR UNKNOWN INDICATION
     Dosage: 600 MG, 12/12HS
     Route: 065
  8. OXACILLIN [Suspect]
     Active Substance: OXACILLIN SODIUM
     Indication: INFECTION
     Dosage: 2 G, 4/4HS
     Route: 042
     Dates: start: 20150121, end: 20150128
  9. CEFTRIAXONA [Concomitant]
     Active Substance: CEFTRIAXONE
     Indication: PRODUCT USED FOR UNKNOWN INDICATION
     Dosage: 2 G, 6/6HS
     Route: 065
  10. DIPIRONA [Concomitant]
     Active Substance: METAMIZOLE
     Indication: PRODUCT USED FOR UNKNOWN INDICATION
     Dosage: 2 G, 6/6HS
     Route: 065
  11. HIDROXICLOROQUINA [Concomitant]
     Indication: PRODUCT USED FOR UNKNOWN INDICATION
     Dosage: 400 MG/ DIA
     Route: 065
  12. ATENOLOL. [Concomitant]
     Active Substance: ATENOLOL
     Indication: PRODUCT USED FOR UNKNOWN INDICATION
     Dosage: 25 MG/ DIA
     Route: 065

REACTIONS (4)
  - Erythema [Recovered/Resolved]
  - Petechiae [Recovered/Resolved]
  - Pruritus [Recovered/Resolved]
  - Feeling hot [Recovered/Resolved]

NARRATIVE: CASE EVENT DATE: 20150126
